FAERS Safety Report 21757582 (Version 1)
Quarter: 2022Q4

REPORT INFORMATION
  Report Type: Spontaneous
  Country: CA (occurrence: CA)
  Receive Date: 20221221
  Receipt Date: 20221221
  Transmission Date: 20230112
  Serious: Yes (Other)
  Sender: FDA-Public Use
  Company Number: CA-CELLTRION INC.-2022CA021410

PATIENT

DRUGS (2)
  1. INFLECTRA [Suspect]
     Active Substance: INFLIXIMAB-DYYB
     Indication: Crohn^s disease
     Dosage: 5 MG/KG, INDUCTION DOSES AT WK 0, 2 + 6, THEN EVERY 8 WKS (ROUNDED TO NEAREST VIAL)
     Route: 042
     Dates: start: 20221124
  2. INFLECTRA [Suspect]
     Active Substance: INFLIXIMAB-DYYB
     Dosage: 300 MG (TO RCV 5 MG/KG), INDUCTION DOSES AT WK 0, 2 + 6, THEN EVERY 8 WKS (ROUNDED TO NEAREST VIAL)
     Route: 042
     Dates: start: 20221209

REACTIONS (4)
  - Vomiting [Recovered/Resolved]
  - Abdominal distension [Recovered/Resolved]
  - Abdominal pain [Recovered/Resolved]
  - Off label use [Unknown]

NARRATIVE: CASE EVENT DATE: 20221101
